FAERS Safety Report 5566617-6 (Version None)
Quarter: 2007Q4

REPORT INFORMATION
  Report Type: 
  Country: None (occurrence: None)
  Receive Date: 20071219
  Receipt Date: 20071212
  Transmission Date: 20080405
  Serious: Yes (Hospitalization, Other)
  Sender: FDA-Public Use
  Company Number: PHMT2007CA02391

PATIENT
  Age: 76 Year
  Sex: Male
  Weight: 73 kg

DRUGS (5)
  1. GLEEVEC [Suspect]
     Indication: CHRONIC MYELOID LEUKAEMIA
     Dosage: 400 MG
     Dates: start: 20020301, end: 20070401
  2. GLEEVEC [Suspect]
     Dosage: RESTARTED AFTER 30 DAYS
     Dates: start: 20070501, end: 20071206
  3. L-THYROXINE [Concomitant]
  4. HYDROCHLOROTHIAZIDE [Concomitant]
  5. BISOPROLOL [Concomitant]

REACTIONS (5)
  - BASEDOW'S DISEASE [None]
  - INTRAOCULAR PRESSURE INCREASED [None]
  - PERIORBITAL OEDEMA [None]
  - RETINAL VASCULAR DISORDER [None]
  - RETINAL VEIN OCCLUSION [None]
